FAERS Safety Report 17051157 (Version 2)
Quarter: 2020Q1

REPORT INFORMATION
  Report Type: Spontaneous
  Country: IT (occurrence: IT)
  Receive Date: 20191120
  Receipt Date: 20200110
  Transmission Date: 20200409
  Serious: Yes (Other)
  Sender: FDA-Public Use
  Company Number: IT-AMGEN-ITASP2019190648

PATIENT

DRUGS (7)
  1. RITUXIMAB. [Suspect]
     Active Substance: RITUXIMAB
     Indication: B-CELL LYMPHOMA
     Dosage: 375 MILLIGRAM/SQ. METER, CYCLICAL (SIX 4-WEEKS CYCLE) ON DAY 1
     Route: 042
  2. PEGFILGRASTIM [Suspect]
     Active Substance: PEGFILGRASTIM
     Indication: PROPHYLAXIS
     Dosage: 6 MILLIGRAM, CYCLICAL (ON DAY 4 OF EACH CYCLE)
     Route: 058
  3. ACYCLOVIR [ACICLOVIR] [Concomitant]
     Active Substance: ACYCLOVIR
     Indication: INFECTION PROPHYLAXIS
     Dosage: 400 MILLIGRAM, BID (FROM DAY 1 UNTIL 6 MONTHS AFTER THE LAST CYCL)
  4. FILGRASTIM [Suspect]
     Active Substance: FILGRASTIM
     Indication: PROPHYLAXIS
     Dosage: UNK
     Route: 065
  5. LAMIVUDINE. [Concomitant]
     Active Substance: LAMIVUDINE
     Indication: INFECTION PROPHYLAXIS
     Dosage: 100 MILLIGRAM, QD (FROM DAY 1 UNTIL 12 MONTHS AFTER)
  6. BENDAMUSTINE [Suspect]
     Active Substance: BENDAMUSTINE
     Indication: B-CELL LYMPHOMA
     Dosage: 90 MILLIGRAM/SQ. METER, CYCLICAL (SIX 4-WEEKS CYCLE)
     Route: 042
  7. TRIMETHOPRIM SULFAMETHOXAZOLE [Concomitant]
     Active Substance: SULFAMETHOXAZOLE\TRIMETHOPRIM
     Indication: INFECTION PROPHYLAXIS
     Dosage: 960 MILLIGRAM (TWO TIMES A DAY, TWICE A WEEK FROM DAY 1 UNTIL 6 MONTHS)

REACTIONS (11)
  - Bone pain [Unknown]
  - Febrile neutropenia [Unknown]
  - Gastrointestinal infection [Unknown]
  - Bacterial infection [Unknown]
  - Staphylococcal infection [Unknown]
  - Varicella zoster virus infection [Unknown]
  - Hepatitis acute [Unknown]
  - Hepatitis B reactivation [Unknown]
  - Lower respiratory tract infection [Unknown]
  - Cytomegalovirus infection [Unknown]
  - Upper respiratory tract infection [Unknown]
